FAERS Safety Report 26148022 (Version 1)
Quarter: 2025Q4

REPORT INFORMATION
  Report Type: Spontaneous
  Country: US (occurrence: US)
  Receive Date: 20251212
  Receipt Date: 20251212
  Transmission Date: 20260118
  Serious: No
  Sender: ROCHE
  Company Number: US-ROCHE-10000454781

PATIENT
  Age: 49 Year
  Sex: Male

DRUGS (3)
  1. RITUXIMAB [Suspect]
     Active Substance: RITUXIMAB
     Indication: Glomerulonephritis
  2. TACROLIMUS [Concomitant]
     Active Substance: TACROLIMUS
  3. MYFORTIC [Concomitant]
     Active Substance: MYCOPHENOLATE SODIUM

REACTIONS (2)
  - Off label use [Unknown]
  - No adverse event [Unknown]
